FAERS Safety Report 13642593 (Version 3)
Quarter: 2017Q3

REPORT INFORMATION
  Report Type: Spontaneous
  Country: US (occurrence: US)
  Receive Date: 20170612
  Receipt Date: 20170928
  Transmission Date: 20171127
  Serious: Yes (Hospitalization, Other)
  Sender: FDA-Public Use
  Company Number: US-ALLERGAN-1723914US

PATIENT
  Age: 63 Year
  Sex: Male

DRUGS (1)
  1. LINZESS [Suspect]
     Active Substance: LINACLOTIDE
     Indication: CONSTIPATION
     Dosage: 290 ?G, UNKNOWN
     Route: 048
     Dates: start: 2015, end: 20170518

REACTIONS (7)
  - Eating disorder symptom [Unknown]
  - Constipation [Unknown]
  - Insomnia [Unknown]
  - Volvulus [Recovered/Resolved]
  - Bowel movement irregularity [Unknown]
  - Parenteral nutrition [Unknown]
  - Dehydration [Recovered/Resolved]

NARRATIVE: CASE EVENT DATE: 20170519
